FAERS Safety Report 7723594-7 (Version None)
Quarter: 2011Q3

REPORT INFORMATION
  Report Type: 
  Country: None (occurrence: None)
  Receive Date: 20110901
  Receipt Date: 20110827
  Transmission Date: 20111222
  Serious: Yes (Other)
  Sender: FDA-Public Use
  Company Number: DE-SANOFI-AVENTIS-2011SA055271

PATIENT
  Age: 77 Year
  Sex: Male

DRUGS (2)
  1. MULTAQ [Suspect]
     Route: 048
     Dates: end: 20110825
  2. MULTAQ [Suspect]
     Indication: ATRIAL FIBRILLATION
     Route: 048
     Dates: start: 20110308

REACTIONS (3)
  - ATRIAL FIBRILLATION [None]
  - UNDERDOSE [None]
  - NIGHTMARE [None]
